FAERS Safety Report 6497021-4 (Version None)
Quarter: 2009Q4

REPORT INFORMATION
  Report Type: 
  Country: None (occurrence: None)
  Receive Date: 20091215
  Receipt Date: 20090106
  Transmission Date: 20100525
  Serious: No
  Sender: FDA-Public Use
  Company Number: A0762531A

PATIENT
  Age: 66 Year
  Sex: Male

DRUGS (9)
  1. AVODART [Suspect]
     Indication: BENIGN PROSTATIC HYPERPLASIA
     Dosage: .5MG PER DAY
     Route: 048
     Dates: start: 20081115
  2. ALPHAGAN [Concomitant]
  3. NEXIUM [Concomitant]
  4. ALPRAZOLAM [Concomitant]
  5. SAW PALMETTO [Concomitant]
     Dosage: 500MG UNKNOWN
  6. GRAPE SEED EXTRACT [Concomitant]
  7. ASPIRIN [Concomitant]
  8. M.V.I. [Concomitant]
  9. VITAMIN B-12 [Concomitant]

REACTIONS (3)
  - BLADDER DILATATION [None]
  - HYPERSENSITIVITY [None]
  - PARAESTHESIA [None]
